FAERS Safety Report 7200222-0 (Version None)
Quarter: 2010Q4

REPORT INFORMATION
  Report Type: 
  Country: None (occurrence: None)
  Receive Date: 20101228
  Receipt Date: 20101223
  Transmission Date: 20110411
  Serious: Yes (Life-Threatening)
  Sender: FDA-Public Use
  Company Number: A0900532A

PATIENT
  Sex: Male
  Weight: 90.9 kg

DRUGS (4)
  1. ADVAIR [Suspect]
     Indication: ASTHMA
     Dosage: 1PUFF TWICE PER DAY
     Route: 055
  2. SALBUTAMOL [Concomitant]
     Indication: ASTHMA
     Route: 065
  3. PREDNISONE [Concomitant]
     Indication: ASTHMA
     Route: 048
  4. TYLENOL W/ CODEINE NO. 3 [Concomitant]
     Indication: PAIN
     Route: 065

REACTIONS (8)
  - ASTHENIA [None]
  - ASTHMA [None]
  - DRUG INEFFECTIVE [None]
  - DYSPNOEA [None]
  - GAIT DISTURBANCE [None]
  - HYPOXIA [None]
  - PRODUCT QUALITY ISSUE [None]
  - RESPIRATORY DISTRESS [None]
